FAERS Safety Report 24558196 (Version 7)
Quarter: 2025Q3

REPORT INFORMATION
  Report Type: Report from Study
  Country: US (occurrence: US)
  Receive Date: 20241028
  Receipt Date: 20250818
  Transmission Date: 20251021
  Serious: Yes (Hospitalization, Other)
  Sender: TAKEDA
  Company Number: US-TAKEDA-2024TUS093802

PATIENT
  Sex: Female

DRUGS (5)
  1. TEDUGLUTIDE [Suspect]
     Active Substance: TEDUGLUTIDE
     Indication: Short-bowel syndrome
     Dosage: UNK UNK, QD
     Dates: start: 20240808
  2. TEDUGLUTIDE [Suspect]
     Active Substance: TEDUGLUTIDE
     Dosage: UNK UNK, QD
     Dates: start: 202410
  3. TEDUGLUTIDE [Suspect]
     Active Substance: TEDUGLUTIDE
  4. TEDUGLUTIDE [Suspect]
     Active Substance: TEDUGLUTIDE
     Dosage: UNK UNK, QD
  5. IRON [Concomitant]
     Active Substance: IRON

REACTIONS (24)
  - Urinary tract infection [Unknown]
  - Scar [Unknown]
  - Gastrointestinal stoma complication [Unknown]
  - Nausea [Not Recovered/Not Resolved]
  - Crohn^s disease [Not Recovered/Not Resolved]
  - Abscess intestinal [Unknown]
  - Gastrointestinal fistula [Unknown]
  - Intestinal stenosis [Unknown]
  - Gastrointestinal sounds abnormal [Not Recovered/Not Resolved]
  - Needle issue [Unknown]
  - Product packaging difficult to open [Unknown]
  - Gastrointestinal disorder [Not Recovered/Not Resolved]
  - Taste disorder [Not Recovered/Not Resolved]
  - Dyspepsia [Not Recovered/Not Resolved]
  - Blood magnesium decreased [Not Recovered/Not Resolved]
  - Ovarian mass [Unknown]
  - Anorectal discomfort [Not Recovered/Not Resolved]
  - Stoma complication [Not Recovered/Not Resolved]
  - Drug ineffective [Unknown]
  - Injection site discolouration [Not Recovered/Not Resolved]
  - Abdominal pain upper [Unknown]
  - Appetite disorder [Not Recovered/Not Resolved]
  - Abdominal distension [Not Recovered/Not Resolved]
  - Abdominal pain [Not Recovered/Not Resolved]
